FAERS Safety Report 4597823-5 (Version None)
Quarter: 2005Q1

REPORT INFORMATION
  Report Type: 
  Country: None (occurrence: None)
  Receive Date: 20050125
  Receipt Date: 20041019
  Transmission Date: 20050727
  Serious: No
  Sender: FDA-Public Use
  Company Number: USA021225169

PATIENT
  Age: 67 Year
  Sex: Female
  Weight: 55 kg

DRUGS (3)
  1. FORTEO [Suspect]
     Dosage: 20 UG DAY
     Dates: start: 20021211
  2. VITAMIN E [Concomitant]
  3. CALCIUM GLUCONATE [Concomitant]

REACTIONS (8)
  - BALANCE DISORDER [None]
  - DIZZINESS [None]
  - EMOTIONAL DISORDER [None]
  - EMOTIONAL DISTRESS [None]
  - INJECTION SITE HAEMORRHAGE [None]
  - INJECTION SITE HYPERSENSITIVITY [None]
  - NODULE [None]
  - RASH PAPULAR [None]
